FAERS Safety Report 7502550-8 (Version None)
Quarter: 2011Q2

REPORT INFORMATION
  Report Type: 
  Country: None (occurrence: None)
  Receive Date: 20110517
  Receipt Date: 20110504
  Transmission Date: 20111010
  Serious: Yes (Disabling, Other)
  Sender: FDA-Public Use
  Company Number: 913901

PATIENT
  Age: 46 Year
  Sex: Female
  Weight: 62.73 kg

DRUGS (5)
  1. ATIVAN [Concomitant]
  2. METOCLOPRAMIDE HYDROCHLORIDE [Suspect]
     Indication: VOMITING
     Dosage: INTRAVENOUS, INTRAVENOUS
     Route: 042
     Dates: start: 20081229
  3. METOCLOPRAMIDE HYDROCHLORIDE [Suspect]
     Indication: NAUSEA
     Dosage: INTRAVENOUS, INTRAVENOUS
     Route: 042
     Dates: start: 20081229
  4. METOCLOPRAMIDE HYDROCHLORIDE [Suspect]
     Indication: VOMITING
     Dosage: INTRAVENOUS, INTRAVENOUS
     Route: 042
     Dates: start: 20081229
  5. METOCLOPRAMIDE HYDROCHLORIDE [Suspect]
     Indication: NAUSEA
     Dosage: INTRAVENOUS, INTRAVENOUS
     Route: 042
     Dates: start: 20081229

REACTIONS (1)
  - DYSARTHRIA [None]
